FAERS Safety Report 7304723-6 (Version None)
Quarter: 2011Q1

REPORT INFORMATION
  Report Type: 
  Country: None (occurrence: None)
  Receive Date: 20110222
  Receipt Date: 20110209
  Transmission Date: 20110831
  Serious: No
  Sender: FDA-Public Use
  Company Number: US-PFIZER INC-US-WYE-H17104910

PATIENT
  Sex: Female

DRUGS (3)
  1. ZOLOFT [Interacting]
     Dosage: 200 MG, 1X/DAY
     Route: 065
  2. ZOLOFT [Interacting]
     Dosage: 100.0 MG, 1X/DAY
     Route: 065
  3. PRISTIQ [Suspect]
     Dosage: UNKNOWN
     Route: 065

REACTIONS (4)
  - DEPRESSION [None]
  - DRUG INTERACTION [None]
  - RESTLESSNESS [None]
  - DRUG EFFECT DECREASED [None]
